FAERS Safety Report 8905622 (Version 1)
Quarter: 2012Q4

REPORT INFORMATION
  Report Type: 
  Country: GB (occurrence: GB)
  Receive Date: 20121111
  Receipt Date: 20121111
  Transmission Date: 20130627
  Serious: Yes (Other)
  Sender: FDA-Public Use
  Company Number: PHFR2012GB005013

PATIENT
  Age: 49 Year
  Sex: Male

DRUGS (3)
  1. CLOZARIL [Suspect]
     Indication: SCHIZOPHRENIA
     Route: 048
     Dates: start: 20010701, end: 20120911
  2. CLOZARIL [Suspect]
     Dosage: UNK UKN, UNK
     Dates: end: 20121107
  3. GAVISCON [Concomitant]

REACTIONS (8)
  - Gastrointestinal haemorrhage [Unknown]
  - Lower respiratory tract infection [Unknown]
  - Malaise [Unknown]
  - Overdose [Unknown]
  - Nausea [Unknown]
  - Vomiting [Unknown]
  - Neutrophil count increased [Unknown]
  - White blood cell count increased [Unknown]
